FAERS Safety Report 8043194-1 (Version None)
Quarter: 2012Q1

REPORT INFORMATION
  Report Type: 
  Country: None (occurrence: None)
  Receive Date: 20120112
  Receipt Date: 20120106
  Transmission Date: 20120608
  Serious: Yes (Hospitalization)
  Sender: FDA-Public Use
  Company Number: BR-MEDIMMUNE-MEDI-0013121

PATIENT
  Sex: Female
  Weight: 8.3 kg

DRUGS (2)
  1. SYNAGIS [Suspect]
     Indication: BRONCHOPULMONARY DYSPLASIA
  2. SYNAGIS [Suspect]
     Route: 030
     Dates: start: 20100419, end: 20100419

REACTIONS (7)
  - PYREXIA [None]
  - COUGH [None]
  - FATIGUE [None]
  - INFLUENZA [None]
  - BRONCHIOLITIS [None]
  - WHEEZING [None]
  - DRUG INEFFECTIVE [None]
